FAERS Safety Report 4323245-8 (Version None)
Quarter: 2004Q1

REPORT INFORMATION
  Report Type: 
  Country: None (occurrence: None)
  Receive Date: 20040322
  Receipt Date: 20040308
  Transmission Date: 20041129
  Serious: Yes (Death)
  Sender: FDA-Public Use
  Company Number: 205102

PATIENT
  Age: 82 Year
  Sex: Female

DRUGS (1)
  1. RITUXAN [Suspect]
     Indication: LYMPHOMA
     Dosage: 500 MG, INTRAVENOUS
     Route: 042

REACTIONS (11)
  - ANAEMIA [None]
  - BONE MARROW DEPRESSION [None]
  - CARDIAC ARREST [None]
  - DEPRESSED LEVEL OF CONSCIOUSNESS [None]
  - DYSPNOEA [None]
  - FUNGAL INFECTION [None]
  - GASTROINTESTINAL HAEMORRHAGE [None]
  - HISTIOCYTOSIS HAEMATOPHAGIC [None]
  - LUNG INFILTRATION [None]
  - SHOCK HAEMORRHAGIC [None]
  - VIRAL INFECTION [None]
